FAERS Safety Report 4476943-X (Version None)
Quarter: 2004Q4

REPORT INFORMATION
  Report Type: 
  Country: None (occurrence: None)
  Receive Date: 20041013
  Receipt Date: 20041006
  Transmission Date: 20050328
  Serious: Yes (Other)
  Sender: FDA-Public Use
  Company Number: MEDI-0002274

PATIENT
  Age: 58 Year
  Sex: Male
  Weight: 64.5 kg

DRUGS (2)
  1. ETHYOL [Suspect]
     Indication: RADIOTHERAPY
     Dosage: 500 MG , INTRAVENOUS
     Route: 042
     Dates: start: 19980826, end: 19980903
  2. RADIATION THERAPY [Concomitant]

REACTIONS (3)
  - HYPERHIDROSIS [None]
  - NAUSEA [None]
  - PYREXIA [None]
